FAERS Safety Report 9792233 (Version 1)
Quarter: 2014Q1

REPORT INFORMATION
  Report Type: Spontaneous
  Country: US (occurrence: US)
  Receive Date: 20140102
  Receipt Date: 20140102
  Transmission Date: 20141002
  Serious: Yes (Other)
  Sender: FDA-Public Use
  Company Number: US-BAYER-2013-157103

PATIENT
  Sex: Female

DRUGS (1)
  1. ALKA-SELTZER PLUS SPARKLING ORIGINAL COLD FORMULA [Suspect]
     Dosage: UNK
     Route: 048

REACTIONS (3)
  - Sinusitis [None]
  - Ear infection [None]
  - Drug ineffective [None]
